FAERS Safety Report 17426680 (Version 1)
Quarter: 2020Q1

REPORT INFORMATION
  Report Type: Spontaneous
  Country: ZA (occurrence: ZA)
  Receive Date: 20200217
  Receipt Date: 20200217
  Transmission Date: 20200409
  Serious: Yes (Other)
  Sender: FDA-Public Use
  Company Number: ZA-AMGEN-ZAFSP2019038066

PATIENT
  Age: 52 Year
  Sex: Female
  Weight: 67.1 kg

DRUGS (4)
  1. METHOTREXATE SODIUM. [Concomitant]
     Active Substance: METHOTREXATE SODIUM
     Dosage: 17.5 MILLIGRAM
     Dates: start: 201506
  2. ENBREL [Suspect]
     Active Substance: ETANERCEPT
     Indication: RHEUMATOID ARTHRITIS
     Dosage: 50 MILLIGRAM, QWK
     Route: 058
     Dates: start: 201811
  3. PLASMOQUINE [Concomitant]
     Active Substance: CHLOROQUINE SULFATE
     Dosage: UNK
     Dates: start: 201508, end: 201812
  4. LUNAR [LEFLUNOMIDE] [Concomitant]
     Active Substance: LEFLUNOMIDE
     Dosage: 20 MILLIGRAM
     Dates: start: 20171009, end: 201901

REACTIONS (3)
  - Cystitis [Unknown]
  - Urinary tract infection bacterial [Unknown]
  - Weight increased [Unknown]

NARRATIVE: CASE EVENT DATE: 201812
